FAERS Safety Report 23615580 (Version 1)
Quarter: 2024Q1

REPORT INFORMATION
  Report Type: Spontaneous
  Country: JP (occurrence: JP)
  Receive Date: 20240311
  Receipt Date: 20240311
  Transmission Date: 20240410
  Serious: Yes (Other)
  Sender: FDA-Public Use
  Company Number: JP-DSJP-DSJ-2024-110167

PATIENT

DRUGS (2)
  1. DENOSUMAB [Suspect]
     Active Substance: DENOSUMAB
     Indication: Product used for unknown indication
     Dosage: 2DF/DAY (UNK, 2023/03/??, 2023/09/??)
     Route: 048
     Dates: start: 202303
  2. CALCIUM CARBONATE\CHOLECALCIFEROL\MAGNESIUM CARBONATE [Suspect]
     Active Substance: CALCIUM CARBONATE\CHOLECALCIFEROL\MAGNESIUM CARBONATE
     Indication: Product used for unknown indication
     Dosage: UNK (2DF/DAY)
     Route: 048

REACTIONS (8)
  - Internal haemorrhage [Unknown]
  - Physical deconditioning [Unknown]
  - Hypophagia [Unknown]
  - Compression fracture [Unknown]
  - Muscular weakness [Unknown]
  - Pain [Unknown]
  - Insomnia [Unknown]
  - Fall [Unknown]

NARRATIVE: CASE EVENT DATE: 20230101
